FAERS Safety Report 7630905-X (Version None)
Quarter: 2011Q3

REPORT INFORMATION
  Report Type: 
  Country: None (occurrence: None)
  Receive Date: 20110724
  Receipt Date: 20110719
  Transmission Date: 20111222
  Serious: Yes (Other)
  Sender: FDA-Public Use
  Company Number: US-BRISTOL-MYERS SQUIBB COMPANY-15880396

PATIENT
  Age: 8 Year
  Sex: Male

DRUGS (1)
  1. HYDREA [Suspect]
     Indication: SICKLE CELL ANAEMIA
     Dosage: 1 DF: 1000 MG 4 DAYS A WEEK THEN 500 MG 3 DAYS A WEEK
     Route: 048
     Dates: start: 20100101

REACTIONS (1)
  - BACK PAIN [None]
